FAERS Safety Report 9232615 (Version 1)
Quarter: 2013Q2

REPORT INFORMATION
  Report Type: Spontaneous
  Country: US (occurrence: None)
  Receive Date: 20130412
  Receipt Date: 20130412
  Transmission Date: 20140414
  Serious: Yes (Death)
  Sender: FDA-Public Use
  Company Number: 13-F-US-00100

PATIENT
  Age: 68 Year
  Sex: Female

DRUGS (5)
  1. FOLOTYN [Suspect]
     Indication: MYCOSIS FUNGOIDES
     Route: 042
     Dates: start: 20121004
  2. OXYCONTIN (OXYCODONE HYDROCHLORIDE) [Concomitant]
  3. PREDNISONE /0044702/ [Concomitant]
  4. VALTREX (VALACICLOVIR HYDROCHLORIDE) [Concomitant]
  5. NEUPOGEN (FILGRASTIM) [Concomitant]

REACTIONS (2)
  - Mycosis fungoides [None]
  - Malignant neoplasm progression [None]
